FAERS Safety Report 25262905 (Version 1)
Quarter: 2025Q2

REPORT INFORMATION
  Report Type: Spontaneous
  Country: US (occurrence: None)
  Receive Date: 20250501
  Receipt Date: 20250501
  Transmission Date: 20250717
  Serious: Yes (Hospitalization)
  Sender: FDA-CTU
  Company Number: None

PATIENT
  Age: 61 Year
  Sex: Male

DRUGS (3)
  1. AZATHIOPRINE [Suspect]
     Active Substance: AZATHIOPRINE
     Dosage: FREQUENCY : DAILY;?
     Route: 048
     Dates: start: 20250204, end: 20250206
  2. REMDESIVIR [Suspect]
     Active Substance: REMDESIVIR
  3. ZOSYN [Suspect]
     Active Substance: PIPERACILLIN SODIUM\TAZOBACTAM SODIUM

REACTIONS (4)
  - Rash pustular [None]
  - Liver function test increased [None]
  - Pyrexia [None]
  - Rash [None]

NARRATIVE: CASE EVENT DATE: 20250209
